FAERS Safety Report 17650786 (Version 1)
Quarter: 2020Q2

REPORT INFORMATION
  Report Type: Spontaneous
  Country: US (occurrence: US)
  Receive Date: 20200409
  Receipt Date: 20200409
  Transmission Date: 20200713
  Serious: Yes (Death, Life-Threatening, Hospitalization, Other)
  Sender: FDA-Public Use
  Company Number: US-SCIEGEN-2020SCILIT00080

PATIENT
  Age: 65 Year
  Sex: Female

DRUGS (12)
  1. CALCIUM [Interacting]
     Active Substance: CALCIUM
     Indication: HYPOTENSION
     Route: 042
  2. RANOLAZINE EXTENDED-RELEASE TABLETS [Suspect]
     Active Substance: RANOLAZINE
     Indication: PRODUCT USED FOR UNKNOWN INDICATION
     Route: 048
  3. MIRTAZAPINE. [Suspect]
     Active Substance: MIRTAZAPINE
     Indication: PRODUCT USED FOR UNKNOWN INDICATION
     Route: 048
  4. NOREPINEPHRINE. [Interacting]
     Active Substance: NOREPINEPHRINE
     Indication: HYPOTENSION
     Route: 065
  5. GABAPENTIN TABLETS [Suspect]
     Active Substance: GABAPENTIN
     Indication: PRODUCT USED FOR UNKNOWN INDICATION
     Route: 065
  6. RIVAROXABA [Concomitant]
     Indication: PRODUCT USED FOR UNKNOWN INDICATION
     Route: 065
  7. ACTIVATED CHARCOAL. [Interacting]
     Active Substance: ACTIVATED CHARCOAL
     Indication: OVERDOSE
     Route: 048
  8. MAGNESIUM [Interacting]
     Active Substance: MAGNESIUM
     Indication: HYPOTENSION
     Route: 042
  9. QUETIAPINE. [Suspect]
     Active Substance: QUETIAPINE
     Indication: PRODUCT USED FOR UNKNOWN INDICATION
     Dosage: SEVEN PILLS
     Route: 065
  10. VALPROATE [Suspect]
     Active Substance: VALPROIC ACID
     Indication: PRODUCT USED FOR UNKNOWN INDICATION
     Route: 065
  11. CRYSTALLOID [Interacting]
     Active Substance: UNSPECIFIED INGREDIENT
     Indication: HYPOTENSION
     Route: 042
  12. TRAZODONE [Suspect]
     Active Substance: TRAZODONE HYDROCHLORIDE
     Indication: PRODUCT USED FOR UNKNOWN INDICATION
     Route: 065

REACTIONS (13)
  - Electrocardiogram QT prolonged [Unknown]
  - Hypoxia [Unknown]
  - Toxicity to various agents [Unknown]
  - Circulatory collapse [Fatal]
  - Hypotension [Unknown]
  - Hyperhidrosis [Unknown]
  - Generalised tonic-clonic seizure [Unknown]
  - Pulmonary oedema [Unknown]
  - Intentional overdose [Fatal]
  - Somnolence [Unknown]
  - Drug interaction [Unknown]
  - Bradycardia [Unknown]
  - Cardiac arrest [Fatal]
